FAERS Safety Report 9966555 (Version 1)
Quarter: 2014Q1

REPORT INFORMATION
  Report Type: Report from Study
  Country: US (occurrence: US)
  Receive Date: 20140305
  Receipt Date: 20140305
  Transmission Date: 20141002
  Serious: No
  Sender: FDA-Public Use
  Company Number: US-ABBVIE-13P-163-1119432-00

PATIENT
  Age: 59 Year
  Sex: Male
  Weight: 57.2 kg

DRUGS (9)
  1. HUMIRA [Suspect]
     Indication: COLITIS ULCERATIVE
     Dates: start: 20130115, end: 20130115
  2. HUMIRA [Suspect]
     Dates: start: 20130129, end: 20130129
  3. HUMIRA [Suspect]
     Dates: start: 201302, end: 201302
  4. HUMIRA [Suspect]
     Indication: COLITIS ULCERATIVE
     Dates: start: 201302, end: 201306
  5. HUMIRA [Suspect]
     Dates: start: 201306
  6. MVI [Concomitant]
     Indication: VITAMIN SUPPLEMENTATION
  7. MAGNESIUM [Concomitant]
     Indication: MINERAL SUPPLEMENTATION
  8. CALCIUM [Concomitant]
     Indication: OSTEOPENIA
  9. ASACOL [Concomitant]
     Indication: COLITIS ULCERATIVE

REACTIONS (2)
  - Drug ineffective [Recovering/Resolving]
  - Injection site pain [Recovered/Resolved]
